FAERS Safety Report 9540521 (Version 1)
Quarter: 2013Q3

REPORT INFORMATION
  Report Type: Spontaneous
  Country: US (occurrence: US)
  Receive Date: 20130920
  Receipt Date: 20130920
  Transmission Date: 20140515
  Serious: Yes (Other)
  Sender: FDA-Public Use
  Company Number: US-PFIZER INC-2013268872

PATIENT
  Age: 78 Year
  Sex: Female
  Weight: 82.54 kg

DRUGS (3)
  1. PROTONIX [Suspect]
     Indication: GASTROOESOPHAGEAL REFLUX DISEASE
     Dosage: 50 MG, 1X/DAY
     Dates: start: 201302
  2. BABY ASPIRIN [Concomitant]
     Dosage: 81 MG, AS NEEDED
  3. TYLENOL [Concomitant]
     Dosage: 225 MG, AS NEEDED

REACTIONS (2)
  - Arthropathy [Unknown]
  - Pain [Recovered/Resolved]
